FAERS Safety Report 24217461 (Version 1)
Quarter: 2024Q3

REPORT INFORMATION
  Report Type: Spontaneous
  Country: US (occurrence: None)
  Receive Date: 20240816
  Receipt Date: 20240816
  Transmission Date: 20241017
  Serious: Yes (Hospitalization)
  Sender: Public
  Company Number: None

PATIENT
  Age: 64 Year
  Sex: Male
  Weight: 59.4 kg

DRUGS (4)
  1. FLUOROURACIL [Suspect]
     Active Substance: FLUOROURACIL
     Dates: end: 20240802
  2. IRINOTECAN [Suspect]
     Active Substance: IRINOTECAN
     Dates: end: 20240802
  3. LEUCOVORIN CALCIUM [Suspect]
     Active Substance: LEUCOVORIN CALCIUM
     Dates: end: 20240802
  4. NIVOLUMAB [Suspect]
     Active Substance: NIVOLUMAB
     Dates: end: 20240802

REACTIONS (12)
  - Pyrexia [None]
  - Abdominal pain [None]
  - Gastritis [None]
  - Sleep disorder [None]
  - Nausea [None]
  - Dysgeusia [None]
  - Chills [None]
  - Oesophageal wall hypertrophy [None]
  - Computerised tomogram thorax abnormal [None]
  - Pulmonary toxicity [None]
  - Eosinophilic pneumonia [None]
  - Pneumocystis jirovecii pneumonia [None]

NARRATIVE: CASE EVENT DATE: 20240809
